FAERS Safety Report 10042378 (Version 2)
Quarter: 2014Q2

REPORT INFORMATION
  Report Type: Report from Study
  Country: US (occurrence: US)
  Receive Date: 20140327
  Receipt Date: 20140425
  Transmission Date: 20141212
  Serious: Yes (Death, Hospitalization, Other)
  Sender: FDA-Public Use
  Company Number: PHEH2014US006019

PATIENT
  Age: 72 Year
  Sex: Male
  Weight: 78.91 kg

DRUGS (13)
  1. TOBI [Suspect]
     Indication: BRONCHIECTASIS
     Dosage: 300 MG, BID
     Route: 055
     Dates: start: 20130516
  2. TOBI [Suspect]
     Dosage: 300 MG, BID (FOR 28 DAYS ON END 28 DAYS OFF)
     Route: 055
     Dates: start: 20130603
  3. TESSALON [Concomitant]
     Indication: COUGH
     Dosage: 200 MG, BID (AS NEEDED)
     Dates: start: 20140131
  4. ACAPELLA [Concomitant]
     Dosage: UNK
     Dates: start: 20130617
  5. NASACORT AQ [Concomitant]
     Dosage: 55 UG, ACT AERS, TWO SPRAYS IN EACH NOSTRIL EVERYDAY
     Dates: start: 20130603
  6. SEPTRA DS [Concomitant]
     Dosage: 1 DF, QD
     Dates: start: 20130603
  7. SINGULAIR [Concomitant]
     Dosage: 10 MG, QD
     Dates: start: 20130603
  8. AMBIEN CR [Concomitant]
     Dosage: 12.5 MG, TBCR AS DIRECTED
     Dates: start: 20130416
  9. MULTIVITAMIN [Concomitant]
     Dosage: 1 DF, QD
     Route: 048
     Dates: start: 20130128
  10. JALYN [Concomitant]
     Dosage: 1 DF, QD (0.5 TO 0.4 MG)
     Route: 048
     Dates: start: 20130121
  11. BENZONATATE [Concomitant]
     Dosage: 100 MG, BID
     Route: 048
     Dates: start: 20130121
  12. ACYCLOVIR [Concomitant]
     Dosage: 400 MG, BID
     Route: 048
     Dates: start: 20130121
  13. PALGIC [Concomitant]
     Dosage: 4 MG, BID
     Route: 048
     Dates: start: 20130121

REACTIONS (34)
  - Chronic lymphocytic leukaemia [Fatal]
  - Chills [Unknown]
  - Tremor [Unknown]
  - Peripheral swelling [Recovering/Resolving]
  - Joint swelling [Recovering/Resolving]
  - Sputum discoloured [Unknown]
  - Pyrexia [Unknown]
  - Pneumonia [Unknown]
  - Haemorrhagic anaemia [Unknown]
  - Malnutrition [Recovering/Resolving]
  - Oedema [Unknown]
  - Upper-airway cough syndrome [Unknown]
  - Vasomotor rhinitis [Unknown]
  - Productive cough [Unknown]
  - Blood pressure decreased [Unknown]
  - Respiratory rate decreased [Unknown]
  - Oxygen saturation decreased [Unknown]
  - Breath sounds abnormal [Unknown]
  - Tachycardia [Unknown]
  - Supraventricular extrasystoles [Unknown]
  - Lymphadenopathy [Unknown]
  - Immunodeficiency [Unknown]
  - Bronchitis bacterial [Unknown]
  - Obstructive airways disorder [Unknown]
  - Forced expiratory volume decreased [Unknown]
  - Total lung capacity decreased [Unknown]
  - Gastric ulcer [Unknown]
  - Mental status changes [Unknown]
  - Gastroenteritis clostridial [Unknown]
  - Palpitations [Unknown]
  - Thrombocytopenia [Unknown]
  - Malaise [Unknown]
  - Cough [Unknown]
  - Asthenia [Unknown]
